FAERS Safety Report 9829697 (Version 1)
Quarter: 2014Q1

REPORT INFORMATION
  Report Type: Spontaneous
  Country: FR (occurrence: FR)
  Receive Date: 20140120
  Receipt Date: 20140120
  Transmission Date: 20141002
  Serious: Yes (Life-Threatening, Other)
  Sender: FDA-Public Use
  Company Number: FR-009507513-1401FRA006207

PATIENT
  Age: 3 Day
  Sex: Female
  Weight: 2 kg

DRUGS (1)
  1. PROGLICEM [Suspect]
     Indication: HYPERINSULINISM
     Dosage: 10 MG, TID
     Route: 048
     Dates: start: 20130923, end: 20130927

REACTIONS (1)
  - Necrotising colitis [Recovered/Resolved]
